FAERS Safety Report 16739551 (Version 1)
Quarter: 2019Q3

REPORT INFORMATION
  Report Type: Spontaneous
  Country: GB (occurrence: GB)
  Receive Date: 20190826
  Receipt Date: 20190826
  Transmission Date: 20191005
  Serious: Yes (Other)
  Sender: FDA-Public Use
  Company Number: GB-SUN PHARMACEUTICAL INDUSTRIES LTD-2019RR-218580

PATIENT
  Age: 31 Year
  Sex: Female

DRUGS (1)
  1. ISOTRETINOIN. [Suspect]
     Active Substance: ISOTRETINOIN
     Indication: ACNE
     Dosage: 80 MILLIGRAM, DAILY
     Route: 048
     Dates: start: 20190101, end: 20190501

REACTIONS (4)
  - Lethargy [Unknown]
  - Withdrawal syndrome [Unknown]
  - Anaemia folate deficiency [Not Recovered/Not Resolved]
  - Fatigue [Unknown]
